FAERS Safety Report 7503562-0 (Version None)
Quarter: 2011Q2

REPORT INFORMATION
  Report Type: 
  Country: None (occurrence: None)
  Receive Date: 20110525
  Receipt Date: 20110518
  Transmission Date: 20111010
  Serious: Yes (Hospitalization, Other)
  Sender: FDA-Public Use
  Company Number: DE-ROCHE-778448

PATIENT
  Sex: Male
  Weight: 74 kg

DRUGS (4)
  1. BEVACIZUMAB [Suspect]
     Indication: METASTATIC RENAL CELL CARCINOMA
     Dosage: CYCLES 1-30
     Route: 042
     Dates: start: 20100101
  2. INTERFERON [Suspect]
     Indication: METASTATIC RENAL CELL CARCINOMA
     Route: 065
     Dates: start: 20100101, end: 20100201
  3. BEVACIZUMAB [Suspect]
     Dosage: CYCLE 31
     Route: 042
     Dates: start: 20110331, end: 20110331
  4. PHENPROCOUMON [Suspect]
     Route: 065
     Dates: end: 20110408

REACTIONS (3)
  - DEPRESSION [None]
  - ATRIAL FIBRILLATION [None]
  - HAEMOPTYSIS [None]
